FAERS Safety Report 7514949-4 (Version None)
Quarter: 2011Q2

REPORT INFORMATION
  Report Type: 
  Country: None (occurrence: None)
  Receive Date: 20110601
  Receipt Date: 20110505
  Transmission Date: 20111010
  Serious: Yes (Other)
  Sender: FDA-Public Use
  Company Number: US-BAYER-2011-013031

PATIENT
  Age: 29 Year
  Sex: Female
  Weight: 58.957 kg

DRUGS (8)
  1. YAZ [Suspect]
     Dosage: UNK
     Dates: start: 20090121
  2. YAZ [Suspect]
     Dosage: UNK
     Dates: start: 20100119
  3. YAZ [Suspect]
     Indication: CONTRACEPTION
     Dosage: UNK
     Dates: start: 20080301, end: 20091201
  4. YAZ [Suspect]
     Indication: PREMENSTRUAL SYNDROME
     Dosage: UNK
     Dates: start: 20080329, end: 20081228
  5. YAZ [Suspect]
     Dosage: UNK
     Dates: start: 20090301, end: 20091108
  6. ALBUTEROL INHALER [Concomitant]
     Dosage: 2 PUFF(S), UNK
  7. YAZ [Suspect]
     Dosage: UNK
     Dates: start: 20091208
  8. YAZ [Suspect]
     Dosage: UNK
     Dates: start: 20091228

REACTIONS (3)
  - CHOLECYSTITIS CHRONIC [None]
  - GALLBLADDER DISORDER [None]
  - PAIN [None]
